FAERS Safety Report 10177158 (Version 1)
Quarter: 2014Q2

REPORT INFORMATION
  Report Type: Spontaneous
  Country: TN (occurrence: None)
  Receive Date: 20140514
  Receipt Date: 20140514
  Transmission Date: 20141212
  Serious: Yes (Death, Hospitalization)
  Sender: FDA-Public Use
  Company Number: TN-2014-1597

PATIENT
  Age: 44 Year
  Sex: Male
  Weight: 80 kg

DRUGS (2)
  1. NAVELBINE [Suspect]
     Indication: PRODUCT USED FOR UNKNOWN INDICATION
     Dosage: DAY 1 AND 8, CYCKUCAK (1/21)
     Route: 042
     Dates: start: 20140120, end: 20140324
  2. CISPLATIN (CISPLATIN) [Concomitant]

REACTIONS (2)
  - Febrile bone marrow aplasia [None]
  - Renal failure [None]
